FAERS Safety Report 14927337 (Version 2)
Quarter: 2018Q2

REPORT INFORMATION
  Report Type: Report from Study
  Country: IE (occurrence: IE)
  Receive Date: 20180523
  Receipt Date: 20180614
  Transmission Date: 20180711
  Serious: Yes (Hospitalization)
  Sender: FDA-Public Use
  Company Number: PHHY2018IE008380

PATIENT
  Age: 55 Year
  Sex: Female
  Weight: 55.85 kg

DRUGS (2)
  1. COSENTYX [Suspect]
     Active Substance: SECUKINUMAB
     Indication: PSORIASIS
     Dosage: 300 MG, UNK
     Route: 058
     Dates: start: 201604
  2. BETNASOL [Concomitant]
     Indication: SINUSITIS
     Dosage: UNK, QD
     Route: 065
     Dates: start: 20180505

REACTIONS (7)
  - Cough [Recovering/Resolving]
  - Facial pain [Recovering/Resolving]
  - Oral herpes [Recovering/Resolving]
  - Pyrexia [Recovering/Resolving]
  - Nasal obstruction [Recovering/Resolving]
  - Lower respiratory tract infection [Recovering/Resolving]
  - Sinusitis [Recovering/Resolving]

NARRATIVE: CASE EVENT DATE: 20180504
